FAERS Safety Report 7270180-1 (Version None)
Quarter: 2011Q1

REPORT INFORMATION
  Report Type: 
  Country: None (occurrence: None)
  Receive Date: 20110202
  Receipt Date: 20110121
  Transmission Date: 20110831
  Serious: Yes (Other)
  Sender: FDA-Public Use
  Company Number: DZ-ELI_LILLY_AND_COMPANY-DZ201101005687

PATIENT
  Age: 13 Year
  Sex: Male

DRUGS (2)
  1. ATOMOXETINE HCL [Suspect]
     Indication: ATTENTION DEFICIT/HYPERACTIVITY DISORDER
     Dosage: 10 MG, DAILY (1/D)
     Route: 048
     Dates: end: 20101226
  2. CORTICOSTEROIDS [Concomitant]
     Dosage: 1 D/F, UNK

REACTIONS (3)
  - ABNORMAL BEHAVIOUR [None]
  - SUICIDAL BEHAVIOUR [None]
  - IRRITABILITY [None]
